FAERS Safety Report 16786545 (Version 1)
Quarter: 2019Q3

REPORT INFORMATION
  Report Type: Spontaneous
  Country: US (occurrence: US)
  Receive Date: 20190909
  Receipt Date: 20190909
  Transmission Date: 20191005
  Serious: Yes (Death, Hospitalization)
  Sender: FDA-Public Use
  Company Number: US-MYLANLABS-2019M1082826

PATIENT
  Age: 32 Year
  Sex: Female

DRUGS (4)
  1. ACETYLCYSTEINE. [Suspect]
     Active Substance: ACETYLCYSTEINE
     Dosage: DOSE: 6.25 MG/KG/HR
     Route: 050
  2. ACETYLCYSTEINE. [Suspect]
     Active Substance: ACETYLCYSTEINE
     Dosage: DOSE: 15 MG/KG/HR, AND LATER 30 MG/KG/HR, FOLLOWING INITIATION OF HAEMODIALYSIS FOR PERSISTENT AC...
     Route: 050
  3. ACETYLCYSTEINE. [Suspect]
     Active Substance: ACETYLCYSTEINE
     Indication: INTENTIONAL OVERDOSE
     Dosage: ADMINISTERED OVER 1 HOUR
     Route: 050
  4. ACETYLCYSTEINE. [Suspect]
     Active Substance: ACETYLCYSTEINE
     Dosage: ADMINISTERED OVER 4 HOURS
     Route: 050

REACTIONS (1)
  - Drug ineffective [Fatal]
